FAERS Safety Report 21983931 (Version 2)
Quarter: 2023Q2

REPORT INFORMATION
  Report Type: Spontaneous
  Country: US (occurrence: US)
  Receive Date: 20230213
  Receipt Date: 20230417
  Transmission Date: 20230721
  Serious: Yes (Other)
  Sender: FDA-Public Use
  Company Number: US-BRISTOL-MYERS SQUIBB COMPANY-2023-020364

PATIENT
  Age: 77 Year
  Sex: Male
  Weight: 76.2 kg

DRUGS (1)
  1. LENALIDOMIDE [Suspect]
     Active Substance: LENALIDOMIDE
     Indication: Plasma cell myeloma
     Dosage: 1 CAPSULE BY MOUTH DAILY FOR 21 DAYS ON, THEN ONE WEEK OFF
     Route: 048
     Dates: start: 20230203

REACTIONS (7)
  - Pain [Unknown]
  - Fatigue [Unknown]
  - Somnolence [Unknown]
  - Peripheral swelling [Unknown]
  - Diarrhoea [Unknown]
  - Affective disorder [Unknown]
  - Libido decreased [Not Recovered/Not Resolved]
